FAERS Safety Report 9917860 (Version 1)
Quarter: 2014Q1

REPORT INFORMATION
  Report Type: Report from Study
  Country: US (occurrence: US)
  Receive Date: 20140221
  Receipt Date: 20140221
  Transmission Date: 20141002
  Serious: Yes (Other)
  Sender: FDA-Public Use
  Company Number: US-ABBVIE-14P-163-1202586-00

PATIENT
  Age: 65 Year
  Sex: Female

DRUGS (5)
  1. HUMIRA [Suspect]
     Indication: CROHN^S DISEASE
     Dates: start: 20111128
  2. SYNTHROID [Concomitant]
     Indication: HYPOTHYROIDISM
  3. ATORAVASTATIN [Concomitant]
     Indication: BLOOD CHOLESTEROL INCREASED
  4. ESTRADIOL [Concomitant]
     Indication: HORMONE REPLACEMENT THERAPY
  5. BUDESONIDE [Concomitant]
     Indication: CROHN^S DISEASE

REACTIONS (4)
  - Anaemia [Recovered/Resolved]
  - Oropharyngeal pain [Recovered/Resolved]
  - Fatigue [Unknown]
  - Fungal infection [Unknown]
